FAERS Safety Report 12552864 (Version 14)
Quarter: 2021Q4

REPORT INFORMATION
  Report Type: Spontaneous
  Country: JP (occurrence: JP)
  Receive Date: 20160713
  Receipt Date: 20211130
  Transmission Date: 20220304
  Serious: Yes (Other)
  Sender: FDA-Public Use
  Company Number: JP-ASTRAZENECA-2015SE27933

PATIENT

DRUGS (25)
  1. METRELEPTIN [Suspect]
     Active Substance: METRELEPTIN
     Indication: Lipoatrophy
     Dosage: 3.825 MG, QD
     Route: 058
     Dates: start: 20090509, end: 20130924
  2. METRELEPTIN [Suspect]
     Active Substance: METRELEPTIN
     Dosage: 3.825 MG, QD
     Route: 058
     Dates: start: 20130925
  3. SODIUM FERROUS CITRATE [Concomitant]
     Active Substance: SODIUM FERROUS CITRATE
     Indication: Product used for unknown indication
     Dosage: UNK
     Dates: end: 20140822
  4. TENORMIN [Concomitant]
     Active Substance: ATENOLOL
     Indication: Basedow^s disease
     Dosage: UNK
     Dates: start: 20140710, end: 20140801
  5. TENORMIN [Concomitant]
     Active Substance: ATENOLOL
     Indication: Prophylaxis
     Dosage: UNK
     Dates: start: 20160720, end: 20160810
  6. DEXAMETHASONE [Concomitant]
     Active Substance: DEXAMETHASONE
     Indication: Stomatitis
     Dosage: UNK
     Dates: start: 20131204, end: 20131217
  7. CARBIMAZOLE [Concomitant]
     Active Substance: CARBIMAZOLE
     Indication: Basedow^s disease
     Dosage: UNK
     Dates: start: 20140718, end: 20190827
  8. BUSERELIN ACETATE [Concomitant]
     Active Substance: BUSERELIN ACETATE
     Indication: Product used for unknown indication
     Dosage: UNK
     Dates: start: 20160114, end: 20160201
  9. FOLLITROPIN ALFA [Concomitant]
     Active Substance: FOLLITROPIN ALFA
     Indication: Product used for unknown indication
     Dosage: UNK
     Route: 058
     Dates: start: 20160128, end: 20160228
  10. ESTRADIOL [Concomitant]
     Active Substance: ESTRADIOL
     Indication: Infertility
     Dosage: UNK
     Dates: start: 20160220, end: 20170930
  11. UTROGESTAN [Concomitant]
     Active Substance: PROGESTERONE
     Indication: Infertility
     Dosage: UNK
     Dates: start: 20140410, end: 20171014
  12. FERRUM                             /00023505/ [Concomitant]
     Indication: Product used for unknown indication
     Dosage: UNK
     Dates: start: 20180112, end: 20180125
  13. POTASSIUM IODIDE [Concomitant]
     Active Substance: POTASSIUM IODIDE
     Indication: Basedow^s disease
     Dosage: 50 MG, QD
     Route: 048
     Dates: start: 20160720, end: 20181204
  14. METHYLERGONOVINE MALEATE [Concomitant]
     Active Substance: METHYLERGONOVINE MALEATE
     Indication: Infertility
     Dosage: 0.375 MG, QD
     Route: 048
     Dates: start: 20160930, end: 20180524
  15. MAGNESIUM OXIDE [Concomitant]
     Active Substance: MAGNESIUM OXIDE
     Indication: Constipation
     Dosage: UNK
     Dates: start: 20180112, end: 20180326
  16. BANAN [Concomitant]
     Active Substance: CEFPODOXIME PROXETIL
     Indication: Infertility
     Dosage: UNK
     Dates: start: 20170729, end: 20170801
  17. ATENOLOL [Concomitant]
     Active Substance: ATENOLOL
     Indication: Basedow^s disease
     Dosage: UNK
     Dates: start: 20210826
  18. NOVORAPID [Concomitant]
     Active Substance: INSULIN ASPART
     Indication: Gestational diabetes
     Dosage: 2 IU INTERNATIONAL UNIT(S)
     Dates: start: 20180316, end: 20180316
  19. NOVORAPID [Concomitant]
     Active Substance: INSULIN ASPART
     Dosage: 6 IU INTERNATIONAL UNIT(S)
     Dates: start: 20180317, end: 20180317
  20. NOVORAPID [Concomitant]
     Active Substance: INSULIN ASPART
     Dosage: 8 IU INTERNATIONAL UNIT(S)
     Dates: start: 20180318, end: 20180319
  21. NOVORAPID [Concomitant]
     Active Substance: INSULIN ASPART
     Dosage: 10 IU INTERNATIONAL UNIT(S)
     Dates: start: 20180320, end: 20180404
  22. NOVORAPID [Concomitant]
     Active Substance: INSULIN ASPART
     Dosage: 8 IU INTERNATIONAL UNIT(S)
     Dates: start: 20180405, end: 20180418
  23. NOVORAPID [Concomitant]
     Active Substance: INSULIN ASPART
     Dosage: 6 IU INTERNATIONAL UNIT(S)
     Dates: start: 20180419, end: 20200513
  24. SODIUM FERROUS CITRATE [Concomitant]
     Active Substance: SODIUM FERROUS CITRATE
     Indication: Product used for unknown indication
     Dosage: UNK
     Dates: start: 20180514, end: 20180614
  25. SODIUM FERROUS CITRATE [Concomitant]
     Active Substance: SODIUM FERROUS CITRATE
     Dosage: UNK
     Dates: start: 20191218, end: 20200214

REACTIONS (9)
  - Gestational diabetes [Recovered/Resolved]
  - Maternal exposure during pregnancy [Unknown]
  - Maternal exposure during breast feeding [Unknown]
  - Normal newborn [Unknown]
  - Infertility [Not Recovered/Not Resolved]
  - Constipation [Recovering/Resolving]
  - Basedow^s disease [Recovered/Resolved]
  - Basedow^s disease [Not Recovered/Not Resolved]
  - Stomatitis [Recovered/Resolved]

NARRATIVE: CASE EVENT DATE: 20131204
